FAERS Safety Report 24755388 (Version 1)
Quarter: 2024Q4

REPORT INFORMATION
  Report Type: Spontaneous
  Country: US (occurrence: US)
  Receive Date: 20241219
  Receipt Date: 20241219
  Transmission Date: 20250115
  Serious: No
  Sender: PERRIGO
  Company Number: US-PERRIGO-24US011468

PATIENT
  Age: 76 Year
  Sex: Female
  Weight: 61.224 kg

DRUGS (1)
  1. MOMETASONE FUROATE [Suspect]
     Active Substance: MOMETASONE FUROATE
     Indication: Accidental exposure to product
     Dosage: 50 MCG, SINGLE
     Route: 047
     Dates: start: 20241212, end: 20241212

REACTIONS (1)
  - Accidental exposure to product [Unknown]

NARRATIVE: CASE EVENT DATE: 20241212
